FAERS Safety Report 5545384-6 (Version None)
Quarter: 2007Q4

REPORT INFORMATION
  Report Type: 
  Country: None (occurrence: None)
  Receive Date: 20071123
  Receipt Date: 20070314
  Transmission Date: 20080405
  Serious: Yes (Hospitalization)
  Sender: FDA-Public Use
  Company Number: 2007UW05243

PATIENT
  Age: 62 Year
  Sex: Male
  Weight: 88 kg

DRUGS (13)
  1. OXALIPLATIN [Suspect]
     Indication: RECTAL CANCER
     Dosage: 116 MG WEEK IV
     Route: 042
     Dates: start: 20060620
  2. FLUOROURACIL [Suspect]
     Indication: RECTAL CANCER
     Dates: end: 20020715
  3. FLUOROURACIL [Suspect]
     Indication: RECTAL CANCER
     Dosage: 3825 MG Q2WK IV
     Route: 042
     Dates: start: 20060620
  4. LEUCOVORIN CALCIUM [Suspect]
     Indication: RECTAL CANCER
     Dosage: 800 MG Q2WK IV
     Route: 042
     Dates: start: 20060620
  5. GLUCONORM [Concomitant]
  6. METFORMIN HCL [Concomitant]
  7. COVERSYL [Concomitant]
  8. NORVASC [Concomitant]
  9. DYAZIDE [Concomitant]
  10. PAXIL [Concomitant]
  11. ATIVAN [Concomitant]
  12. MORPHINE [Concomitant]
  13. TYLENOL W/ CODEINE NO. 3 [Concomitant]

REACTIONS (5)
  - ABDOMINAL PAIN [None]
  - DEHYDRATION [None]
  - DIARRHOEA [None]
  - FLUSHING [None]
  - NAUSEA [None]
